FAERS Safety Report 7128026-8 (Version None)
Quarter: 2010Q4

REPORT INFORMATION
  Report Type: 
  Country: None (occurrence: None)
  Receive Date: 20101130
  Receipt Date: 20101123
  Transmission Date: 20110411
  Serious: Yes (Other)
  Sender: FDA-Public Use
  Company Number: PHHO2010IT15824

PATIENT
  Sex: Female
  Weight: 77 kg

DRUGS (1)
  1. ZOLEDRONATE T29581+SOLINJ+BM [Suspect]
     Indication: METASTASES TO BONE
     Dosage: 4MG EVERY 28DAYS
     Route: 042
     Dates: start: 20070129, end: 20070618

REACTIONS (3)
  - FISTULA [None]
  - ORAL SURGERY [None]
  - OSTEONECROSIS OF JAW [None]
